FAERS Safety Report 7889566-7 (Version None)
Quarter: 2011Q4

REPORT INFORMATION
  Report Type: 
  Country: None (occurrence: None)
  Receive Date: 20111103
  Receipt Date: 20110325
  Transmission Date: 20120403
  Serious: No
  Sender: FDA-Public Use
  Company Number: US-BRISTOL-MYERS SQUIBB COMPANY-15637143

PATIENT
  Age: 47 Year
  Sex: Female

DRUGS (1)
  1. KENALOG-40 [Suspect]
     Indication: MUSCULOSKELETAL STIFFNESS
     Route: 014
     Dates: start: 20110322

REACTIONS (1)
  - FLUSHING [None]
